FAERS Safety Report 4505607-9 (Version None)
Quarter: 2004Q4

REPORT INFORMATION
  Report Type: 
  Country: None (occurrence: None)
  Receive Date: 20041018
  Receipt Date: 20040727
  Transmission Date: 20050328
  Serious: No
  Sender: FDA-Public Use
  Company Number: 208090

PATIENT
  Age: 27 Year
  Sex: Female
  Weight: 106.1 kg

DRUGS (7)
  1. XOLAIR [Suspect]
     Dosage: 375, Q2W, SUBCUTANEOUS
     Route: 058
     Dates: start: 20040720, end: 20040720
  2. SINGULAIR [Concomitant]
  3. ADVAIR (FLUTICASONE PROPIONATE, SALMETEROL XINAFOATE) [Concomitant]
  4. FLONASE [Concomitant]
  5. DARVOCET N 100 (ACETAMINOPHEN), PROPOXYPHENE NAPSYLATE) [Concomitant]
  6. ALBUTEROL INHALER (ALBUTEROL SULFATE, ALBUTEROL) [Concomitant]
  7. ALBUTEROL NEBULIZER (ALBUTEROL, ALBUTEROL SULFATE) [Concomitant]

REACTIONS (3)
  - ASTHMA [None]
  - PRURITUS GENERALISED [None]
  - SWELLING FACE [None]
